FAERS Safety Report 5410924-4 (Version None)
Quarter: 2007Q3

REPORT INFORMATION
  Report Type: 
  Country: None (occurrence: None)
  Receive Date: 20070809
  Receipt Date: 20070809
  Transmission Date: 20080115
  Serious: Yes (Life-Threatening)
  Sender: FDA-Public Use
  Company Number: None

PATIENT
  Sex: Female
  Weight: 63.5 kg

DRUGS (3)
  1. REMICADE [Suspect]
     Indication: ANAL FISTULA
     Dosage: 400MG ONCE IV DRIP
     Route: 041
     Dates: start: 20070623, end: 20070808
  2. REMICADE [Suspect]
     Indication: CROHN'S DISEASE
     Dosage: 400MG ONCE IV DRIP
     Route: 041
     Dates: start: 20070623, end: 20070808
  3. PURINETHOL [Concomitant]

REACTIONS (7)
  - ANAPHYLACTIC REACTION [None]
  - BLOOD PRESSURE DIASTOLIC DECREASED [None]
  - CHEST DISCOMFORT [None]
  - DYSPNOEA [None]
  - ERYTHEMA [None]
  - INFUSION RELATED REACTION [None]
  - OXYGEN SATURATION DECREASED [None]
